FAERS Safety Report 20944914 (Version 1)
Quarter: 2022Q2

REPORT INFORMATION
  Report Type: Spontaneous
  Country: CA (occurrence: CA)
  Receive Date: 20220610
  Receipt Date: 20220610
  Transmission Date: 20220721
  Serious: Yes (Life-Threatening, Other)
  Sender: FDA-Public Use
  Company Number: None

PATIENT
  Age: 3 Year
  Sex: Female
  Weight: 12 kg

DRUGS (32)
  1. CARBOPLATIN [Suspect]
     Active Substance: CARBOPLATIN
     Indication: Prophylaxis against transplant rejection
     Dosage: SOLUTION INTRAVENOUS
     Route: 042
  2. THIOTEPA [Suspect]
     Active Substance: THIOTEPA
     Indication: Prophylaxis against transplant rejection
     Route: 042
  3. ACYCLOVIR [Concomitant]
     Active Substance: ACYCLOVIR
  4. ATROPINE [Concomitant]
     Active Substance: ATROPINE
  5. CEFTAZIDIME [Concomitant]
     Active Substance: CEFTAZIDIME
  6. CETIRIZINE [Concomitant]
     Active Substance: CETIRIZINE HYDROCHLORIDE
  7. CHOLECALCIFEROL [Concomitant]
     Active Substance: CHOLECALCIFEROL
  8. DEXMEDETOMIDINE HYDROCHLORIDE [Concomitant]
     Active Substance: DEXMEDETOMIDINE HYDROCHLORIDE
  9. FAMOTIDINE [Concomitant]
     Active Substance: FAMOTIDINE
  10. FLUCONAZOLE [Concomitant]
     Active Substance: FLUCONAZOLE
  11. FUROSEMIDE [Concomitant]
     Active Substance: FUROSEMIDE
  12. HYDROXYZINE [Concomitant]
     Active Substance: HYDROXYZINE HYDROCHLORIDE
  13. LEVETIRACETAM [Concomitant]
     Active Substance: LEVETIRACETAM
  14. LORAZEPAM [Concomitant]
     Active Substance: LORAZEPAM
  15. MAGNESIUM [Concomitant]
     Active Substance: MAGNESIUM
  16. MEROPENEM [Concomitant]
     Active Substance: MEROPENEM
     Dosage: POWDER FOR SOLUTION INTRAVENOUS
  17. METHYLPREDNISOLONE [Concomitant]
     Active Substance: METHYLPREDNISOLONE
  18. METOCLOPRAMIDE [Concomitant]
     Active Substance: METOCLOPRAMIDE
  19. METOLAZONE [Concomitant]
     Active Substance: METOLAZONE
  20. MIDAZOLAM [Concomitant]
     Active Substance: MIDAZOLAM
     Dosage: INJECTION, SOLUTION INTRAMUSCULAR
  21. MONTELUKAST [Concomitant]
     Active Substance: MONTELUKAST SODIUM
  22. MYCAMINE [Concomitant]
     Active Substance: MICAFUNGIN SODIUM
     Dosage: POWDER FOR SOLUTION INTRAVENOUS
  23. NOREPINEPHRINE [Concomitant]
     Active Substance: NOREPINEPHRINE
     Dosage: LIQUID INTRAVENOUS
  24. OLANZAPINE [Concomitant]
     Active Substance: OLANZAPINE
  25. ONDANSETRON [Concomitant]
     Active Substance: ONDANSETRON
  26. PENTAM [Concomitant]
     Active Substance: PENTAMIDINE ISETHIONATE
  27. POTASSIUM [Concomitant]
     Active Substance: POTASSIUM
     Dosage: SOLUTION INTRAVENOUS
  28. PROBENECID [Concomitant]
     Active Substance: PROBENECID
  29. ROCURONIUM BROMIDE [Concomitant]
     Active Substance: ROCURONIUM BROMIDE
  30. SULFAMETHOXAZOLE\TRIMETHOPRIM [Concomitant]
     Active Substance: SULFAMETHOXAZOLE\TRIMETHOPRIM
  31. URSODIOL [Concomitant]
     Active Substance: URSODIOL
  32. VISTIDE [Concomitant]
     Active Substance: CIDOFOVIR
     Dosage: LIQUID INTRAVENOUS

REACTIONS (4)
  - Aplastic anaemia [Not Recovered/Not Resolved]
  - Febrile neutropenia [Not Recovered/Not Resolved]
  - Mucosal inflammation [Not Recovered/Not Resolved]
  - Off label use [Unknown]
